FAERS Safety Report 21308361 (Version 2)
Quarter: 2022Q3

REPORT INFORMATION
  Report Type: Spontaneous
  Country: US (occurrence: US)
  Receive Date: 20220908
  Receipt Date: 20220914
  Transmission Date: 20221027
  Serious: No
  Sender: FDA-Public Use
  Company Number: US-AMGEN-USASP2022145856

PATIENT
  Age: 20 Year
  Sex: Male
  Weight: 71.837 kg

DRUGS (5)
  1. NEULASTA [Suspect]
     Active Substance: PEGFILGRASTIM
     Indication: Testis cancer
     Dosage: 6 MILLIGRAM
     Route: 065
     Dates: start: 20220722
  2. NEULASTA [Suspect]
     Active Substance: PEGFILGRASTIM
     Indication: Neutropenia
  3. BLEOMYCIN [Concomitant]
     Active Substance: BLEOMYCIN SULFATE
     Indication: Testis cancer
     Dosage: UNK
     Dates: start: 20220606
  4. CISPLATIN [Concomitant]
     Active Substance: CISPLATIN
     Indication: Testis cancer
     Dosage: UNK
     Dates: start: 20220606
  5. ETOPOSIDE [Concomitant]
     Active Substance: ETOPOSIDE
     Indication: Testis cancer
     Dosage: UNK
     Dates: start: 20220606

REACTIONS (4)
  - Wrong technique in product usage process [Unknown]
  - Headache [Unknown]
  - Product dose omission issue [Recovered/Resolved]
  - White blood cell count decreased [Unknown]

NARRATIVE: CASE EVENT DATE: 20220812
